FAERS Safety Report 10625877 (Version 2)
Quarter: 2014Q4

REPORT INFORMATION
  Report Type: Spontaneous
  Country: GB (occurrence: GB)
  Receive Date: 20141204
  Receipt Date: 20141204
  Transmission Date: 20150529
  Serious: Yes (Death, Hospitalization, Other)
  Sender: FDA-Public Use
  Company Number: GB-AMGEN-GBRSP2014073301

PATIENT
  Age: 86 Year
  Sex: Female
  Weight: 36 kg

DRUGS (10)
  1. CALCIUM [Concomitant]
     Active Substance: CALCIUM
     Dosage: UNK
     Dates: start: 201206, end: 201302
  2. LEVOTHYROXINE SODIUM. [Concomitant]
     Active Substance: LEVOTHYROXINE SODIUM
     Dosage: 100 MUG, QD
     Route: 048
     Dates: start: 20140902
  3. PROLIA [Suspect]
     Active Substance: DENOSUMAB
     Indication: OSTEOPOROSIS POSTMENOPAUSAL
     Dosage: 60 MG, Q6MO
     Route: 058
     Dates: start: 20120423, end: 201310
  4. LEVOTHYROXINE [Concomitant]
     Active Substance: LEVOTHYROXINE
     Indication: HYPOTHYROIDISM
     Dosage: 100 MG, QD
     Route: 048
     Dates: start: 20111024
  5. METOCLOPRAMIDE. [Concomitant]
     Active Substance: METOCLOPRAMIDE
     Dosage: 30 MG, UNK
     Dates: start: 20141006
  6. ADCAL D3 [Concomitant]
     Active Substance: CALCIUM CARBONATE\CHOLECALCIFEROL
     Indication: OSTEOPOROSIS
     Dosage: UNK UNK, BID
     Route: 048
     Dates: start: 20120423
  7. ULTRABASE                          /00103901/ [Concomitant]
     Dosage: 500 G, BID (APPLY TWICE A DAY AS REQUIRED)
     Dates: start: 20140609
  8. VITAMIN D                          /00107901/ [Concomitant]
     Active Substance: ERGOCALCIFEROL
  9. MORPHINE SULFATE. [Concomitant]
     Active Substance: MORPHINE SULFATE
     Dosage: 30 MG OVER 24 HRS AND 5 MG REQUIRED FOR BREAKTHROUGH 4 HRLY AS REQUIRED
     Route: 058
     Dates: start: 20141009
  10. LANSOPRAZOLE. [Concomitant]
     Active Substance: LANSOPRAZOLE
     Dosage: 30 MG, QD
     Dates: start: 20140902

REACTIONS (6)
  - Hypocalcaemia [Recovering/Resolving]
  - Cholelithiasis [Unknown]
  - Hypoaesthesia [Recovering/Resolving]
  - Electrocardiogram QT prolonged [Recovering/Resolving]
  - Eye disorder [Unknown]
  - Death [Fatal]

NARRATIVE: CASE EVENT DATE: 2012
